FAERS Safety Report 13896626 (Version 1)
Quarter: 2017Q3

REPORT INFORMATION
  Report Type: Spontaneous
  Country: CA (occurrence: CA)
  Receive Date: 20170823
  Receipt Date: 20170823
  Transmission Date: 20171127
  Serious: Yes (Life-Threatening, Hospitalization)
  Sender: FDA-Public Use
  Company Number: CA-JNJFOC-20170817962

PATIENT
  Age: 74 Year
  Sex: Female

DRUGS (16)
  1. JANUMET [Concomitant]
     Active Substance: METFORMIN HYDROCHLORIDE\SITAGLIPTIN PHOSPHATE
     Route: 065
  2. PANTOLOC [Concomitant]
     Active Substance: PANTOPRAZOLE SODIUM
     Route: 065
  3. LOSARTAN. [Concomitant]
     Active Substance: LOSARTAN
     Route: 065
  4. NAPROXEN. [Concomitant]
     Active Substance: NAPROXEN
     Route: 065
  5. GLYBURIDE. [Concomitant]
     Active Substance: GLYBURIDE
     Route: 065
  6. INDAPAMIDE. [Concomitant]
     Active Substance: INDAPAMIDE
     Route: 065
  7. LEVEMIR [Concomitant]
     Active Substance: INSULIN DETEMIR
     Route: 058
  8. VITAMIN D [Concomitant]
     Active Substance: CHOLECALCIFEROL
     Route: 065
  9. VITAMIN C [Concomitant]
     Active Substance: ASCORBIC ACID
     Route: 065
  10. DOCUSATE SODIUM. [Concomitant]
     Active Substance: DOCUSATE SODIUM
     Route: 065
  11. ATENOLOL. [Concomitant]
     Active Substance: ATENOLOL
     Route: 065
  12. INVOKANA [Suspect]
     Active Substance: CANAGLIFLOZIN
     Indication: DIABETES MELLITUS
     Route: 048
  13. FERAMAX [Concomitant]
     Active Substance: IRON\POLYSACCHARIDES
     Route: 065
  14. DOMPERIDONE [Concomitant]
     Active Substance: DOMPERIDONE
     Route: 065
  15. AMLODIPINE W/ATORVASTATIN [Concomitant]
     Active Substance: AMLODIPINE\ATORVASTATIN
     Route: 065
  16. VITAMIN B12 [Concomitant]
     Active Substance: CYANOCOBALAMIN
     Route: 065

REACTIONS (7)
  - Feeling cold [Recovered/Resolved]
  - Dizziness [Recovered/Resolved]
  - Tremor [Recovered/Resolved]
  - Escherichia urinary tract infection [Recovered/Resolved]
  - Sepsis [Recovered/Resolved]
  - Bacterial pyelonephritis [Recovered/Resolved]
  - Fatigue [Recovered/Resolved]
